FAERS Safety Report 8976053 (Version 3)
Quarter: 2013Q1

REPORT INFORMATION
  Report Type: Report from Study
  Country: BE (occurrence: BE)
  Receive Date: 20121219
  Receipt Date: 20130115
  Transmission Date: 20140127
  Serious: Yes (Other)
  Sender: FDA-Public Use
  Company Number: BE-BAYER-2012-131685

PATIENT
  Sex: Female

DRUGS (1)
  1. BETAFERON [Suspect]
     Dosage: UNK
     Route: 058
     Dates: start: 20060901, end: 20121201

REACTIONS (5)
  - Muscle haemorrhage [None]
  - Skin oedema [None]
  - Incorrect route of drug administration [None]
  - Injection site reaction [None]
  - Acute abdomen [None]
